FAERS Safety Report 17307493 (Version 2)
Quarter: 2020Q1

REPORT INFORMATION
  Report Type: Spontaneous
  Country: US (occurrence: US)
  Receive Date: 20200123
  Receipt Date: 20200210
  Transmission Date: 20200409
  Serious: Yes (Other)
  Sender: FDA-Public Use
  Company Number: US-JNJFOC-20200125019

PATIENT
  Age: 8 Year
  Sex: Male
  Weight: 24.52 kg

DRUGS (1)
  1. CHILDRENS BENADRYL ALLERGY [Suspect]
     Active Substance: DIPHENHYDRAMINE HYDROCHLORIDE
     Indication: MALAISE
     Dosage: 5 ML ONE TIME AT NIGHT, LAST ADMINISTERED ON 08/JAN/2020
     Route: 048
     Dates: start: 20200108, end: 20200108

REACTIONS (2)
  - Hallucination [Recovered/Resolved]
  - Product use in unapproved indication [Recovered/Resolved]

NARRATIVE: CASE EVENT DATE: 20200108
